FAERS Safety Report 9215044 (Version 2)
Quarter: 2013Q4

REPORT INFORMATION
  Report Type: Spontaneous
  Country: US (occurrence: US)
  Receive Date: 20130405
  Receipt Date: 20131211
  Transmission Date: 20140711
  Serious: Yes (Other)
  Sender: FDA-Public Use
  Company Number: US-BAYER-2013-041199

PATIENT
  Age: 29 Year
  Sex: Female

DRUGS (8)
  1. YAZ [Suspect]
     Dosage: UNK
     Dates: start: 2009, end: 2010
  2. YASMIN [Suspect]
     Dosage: UNK
     Dates: start: 2009, end: 2010
  3. OCELLA [Suspect]
     Dosage: UNK
     Dates: start: 2009, end: 2010
  4. BENTYL [Concomitant]
     Indication: ABDOMINAL PAIN
     Dosage: 20 MG, UNK
     Route: 048
     Dates: start: 20100311
  5. NEXIUM [Concomitant]
     Dosage: 40 MG, UNK
     Route: 048
     Dates: start: 20100311
  6. ZANTAC [Concomitant]
     Dosage: 150 MG, UNK
     Route: 048
     Dates: start: 20100311
  7. CARAFATE [Concomitant]
     Dosage: 1 GRAM, UNK
     Route: 048
     Dates: start: 20100411
  8. DARVOCET-N [Concomitant]
     Indication: PAIN
     Dosage: 4-6 HOURS AS NEEDED
     Route: 048
     Dates: start: 20100401

REACTIONS (12)
  - Cholelithiasis [None]
  - Biliary dyskinesia [None]
  - Cholecystitis chronic [None]
  - Abdominal pain [None]
  - Injury [None]
  - Pain [None]
  - Emotional distress [None]
  - General physical health deterioration [None]
  - Anxiety [None]
  - Pain [None]
  - Anhedonia [None]
  - Fear of disease [None]
